FAERS Safety Report 6639033-3 (Version None)
Quarter: 2010Q1

REPORT INFORMATION
  Report Type: 
  Country: None (occurrence: None)
  Receive Date: 20100317
  Receipt Date: 20100109
  Transmission Date: 20100710
  Serious: Yes (Disabling)
  Sender: FDA-Public Use
  Company Number: CA-ASTRAZENECA-2010SE11390

PATIENT
  Age: 65 Year
  Sex: Male
  Weight: 83.9 kg

DRUGS (9)
  1. CRESTOR [Suspect]
     Route: 048
  2. FORMULE ART [Concomitant]
     Route: 065
  3. FORMULE DR [Concomitant]
  4. NORVASC [Concomitant]
     Route: 065
  5. NOVOLIN [Concomitant]
     Route: 065
  6. PMS-ASA EC [Concomitant]
     Route: 065
  7. RATIO-MPA [Concomitant]
     Route: 065
  8. SANDOZ METFORMIN FC [Concomitant]
     Route: 048
  9. TONIQUE DEPURATIF [Concomitant]
     Route: 065

REACTIONS (2)
  - HYPOAESTHESIA [None]
  - SKIN TIGHTNESS [None]
